FAERS Safety Report 5222246-5 (Version None)
Quarter: 2007Q1

REPORT INFORMATION
  Report Type: 
  Country: None (occurrence: None)
  Receive Date: 20070129
  Receipt Date: 20061120
  Transmission Date: 20070707
  Serious: No
  Sender: FDA-Public Use
  Company Number: US-GLAXOSMITHKLINE-A0628170A

PATIENT
  Sex: Male

DRUGS (1)
  1. WELLBUTRIN [Suspect]
     Indication: ANXIETY
     Route: 048

REACTIONS (5)
  - DENTAL CARIES [None]
  - DRY MOUTH [None]
  - GINGIVAL DISORDER [None]
  - TOOTH EXTRACTION [None]
  - TOOTHACHE [None]
